FAERS Safety Report 16960836 (Version 1)
Quarter: 2019Q4

REPORT INFORMATION
  Report Type: Spontaneous
  Country: CZ (occurrence: CZ)
  Receive Date: 20191025
  Receipt Date: 20191025
  Transmission Date: 20200122
  Serious: Yes (Hospitalization, Other)
  Sender: FDA-Public Use
  Company Number: CZ-ACCORD-159199

PATIENT
  Sex: Male

DRUGS (5)
  1. CICLOSPORIN [Suspect]
     Active Substance: CYCLOSPORINE
     Indication: PRODUCT USED FOR UNKNOWN INDICATION
     Dosage: FROM DAY 1, STOPPED ON DAY +164
  2. BUSULFAN. [Concomitant]
     Active Substance: BUSULFAN
     Dosage: FROM DAYS 5 TO 2
  3. ALEMTUZUMAB [Concomitant]
     Active Substance: ALEMTUZUMAB
     Dosage: FROM DAYS 8 TO 6
  4. FLUDARABINE [Concomitant]
     Active Substance: FLUDARABINE PHOSPHATE
     Dosage: FROM DAYS 6 TO 3
  5. MYCOPHENOLIC ACID. [Suspect]
     Active Substance: MYCOPHENOLIC ACID
     Indication: PRODUCT USED FOR UNKNOWN INDICATION
     Dosage: FROM DAY 1 , STOPPED ON DAY +60

REACTIONS (3)
  - Cytomegalovirus infection [Recovered/Resolved]
  - Mucosal inflammation [Recovered/Resolved]
  - Febrile neutropenia [Recovered/Resolved]
